FAERS Safety Report 11880163 (Version 3)
Quarter: 2016Q2

REPORT INFORMATION
  Report Type: Spontaneous
  Country: US (occurrence: US)
  Receive Date: 20151230
  Receipt Date: 20160628
  Transmission Date: 20160815
  Serious: Yes (Other)
  Sender: FDA-Public Use
  Company Number: US-ASTRAZENECA-2012SE74396

PATIENT
  Age: 53 Year
  Sex: Male
  Weight: 81.6 kg

DRUGS (15)
  1. VITAMIN D [Concomitant]
     Active Substance: CHOLECALCIFEROL
     Dosage: 50000.0IU UNKNOWN
     Dates: start: 20031002
  2. CRESTOR [Suspect]
     Active Substance: ROSUVASTATIN CALCIUM
     Indication: BLOOD CHOLESTEROL INCREASED
     Dosage: 20.0MG UNKNOWN
     Route: 048
     Dates: start: 20070112
  3. HYDROCODONE [Concomitant]
     Active Substance: HYDROCODONE
     Dates: start: 20120213
  4. DOXYCYCLINE. [Concomitant]
     Active Substance: DOXYCYCLINE
     Dosage: 100.0MG UNKNOWN
     Dates: start: 20080327
  5. ECOTRIN [Concomitant]
     Active Substance: ASPIRIN
  6. AMOXICILLIN. [Concomitant]
     Active Substance: AMOXICILLIN
     Dosage: 500.0MG UNKNOWN
     Dates: start: 20070807
  7. TAMSULOSIN HCL [Concomitant]
     Active Substance: TAMSULOSIN
     Dosage: 0.4MG UNKNOWN
     Dates: start: 20150218
  8. EFFIENT [Concomitant]
     Active Substance: PRASUGREL HYDROCHLORIDE
     Dosage: 10.0MG UNKNOWN
     Dates: start: 20150520
  9. IBUPROFEN. [Concomitant]
     Active Substance: IBUPROFEN
  10. PLAVIX [Concomitant]
     Active Substance: CLOPIDOGREL BISULFATE
     Dosage: 75.0MG UNKNOWN
     Dates: start: 20061115
  11. CLINDAMYCIN HCL [Concomitant]
     Active Substance: CLINDAMYCIN HYDROCHLORIDE
     Dosage: 150.0MG UNKNOWN
     Dates: start: 20100302
  12. TOPROL XL [Concomitant]
     Active Substance: METOPROLOL SUCCINATE
     Dosage: 25.0MG UNKNOWN
     Dates: start: 20100820
  13. CRESTOR [Suspect]
     Active Substance: ROSUVASTATIN CALCIUM
     Indication: BLOOD CHOLESTEROL INCREASED
     Route: 048
     Dates: start: 200601
  14. METFORMIN [Concomitant]
     Active Substance: METFORMIN HYDROCHLORIDE
     Dates: start: 20110531
  15. ATORVASTATIN [Concomitant]
     Active Substance: ATORVASTATIN
     Dosage: 40.0MG UNKNOWN
     Dates: start: 20120524

REACTIONS (7)
  - Angina pectoris [Unknown]
  - Diabetic neuropathy [Unknown]
  - Myocardial infarction [Unknown]
  - Syncope [Unknown]
  - Type 2 diabetes mellitus [Not Recovered/Not Resolved]
  - Blood triglycerides increased [Not Recovered/Not Resolved]
  - Cardiomyopathy [Unknown]

NARRATIVE: CASE EVENT DATE: 2006
